FAERS Safety Report 6230334-X (Version None)
Quarter: 2009Q2

REPORT INFORMATION
  Report Type: 
  Country: None (occurrence: None)
  Receive Date: 20090611
  Receipt Date: 20090603
  Transmission Date: 20091009
  Serious: Yes (Disabling, Other)
  Sender: FDA-Public Use
  Company Number: ZYD-09-AE-067

PATIENT
  Age: 40 Year
  Sex: Female

DRUGS (1)
  1. PAROXETINE HCL [Suspect]
     Indication: ANXIETY
     Dosage: 1 TABLET, DAILY, ORAL
     Route: 048

REACTIONS (12)
  - AGGRESSION [None]
  - BLOOD PRESSURE FLUCTUATION [None]
  - CONVULSION [None]
  - DYSARTHRIA [None]
  - DYSKINESIA [None]
  - DYSPNOEA [None]
  - HALLUCINATION [None]
  - MIGRAINE [None]
  - PARAESTHESIA [None]
  - PERSONALITY CHANGE [None]
  - PRURITUS [None]
  - TIC [None]
